FAERS Safety Report 9032085 (Version 2)
Quarter: 2013Q2

REPORT INFORMATION
  Report Type: Spontaneous
  Country: US (occurrence: US)
  Receive Date: 20130122
  Receipt Date: 20130528
  Transmission Date: 20140414
  Serious: Yes (Hospitalization)
  Sender: FDA-Public Use
  Company Number: US-BAYER-2013-007585

PATIENT
  Age: 39 Year
  Sex: Female
  Weight: 71.66 kg

DRUGS (12)
  1. YASMIN [Suspect]
     Indication: ACNE
  2. LEVAQUIN [Concomitant]
     Dosage: UNK
     Dates: start: 20030212
  3. COMBIVENT [Concomitant]
     Indication: COUGH
     Dosage: 2 PUFF(S), Q4HR
  4. COMBIVENT [Concomitant]
     Indication: DYSPNOEA
  5. Z-PAK [Concomitant]
     Indication: UPPER RESPIRATORY TRACT INFECTION
     Dosage: 250 MG, UNK
  6. METHYLPREDNISOLONE [Concomitant]
     Dosage: 4 MG, UNK
  7. XANAX [Concomitant]
  8. ADVIL [Concomitant]
  9. CHERATUSSIN AC [Concomitant]
     Indication: COUGH
     Dosage: 1 TO 2 TSP EVERY 4-6 HRS
  10. TUSSIONEX [Concomitant]
     Dosage: 1 TSP EVERY 12 HOURS
  11. AZITHROMYCIN [Concomitant]
     Indication: BRONCHITIS
  12. LIPITOR [Concomitant]

REACTIONS (4)
  - Cerebrovascular accident [Recovered/Resolved]
  - Injury [Recovered/Resolved]
  - Pain [None]
  - Pain [Recovered/Resolved]
